FAERS Safety Report 14562444 (Version 1)
Quarter: 2018Q1

REPORT INFORMATION
  Report Type: Spontaneous
  Country: US (occurrence: US)
  Receive Date: 20180222
  Receipt Date: 20180222
  Transmission Date: 20180509
  Serious: Yes (Death)
  Sender: FDA-Public Use
  Company Number: US-DRREDDYS-USA/USA/18/0096425

PATIENT

DRUGS (6)
  1. CAPECITABINE. [Suspect]
     Active Substance: CAPECITABINE
     Indication: BREAST CANCER
     Dosage: ON DAYS 1-14
     Route: 048
  2. CYCLOPHOSPHAMIDE. [Suspect]
     Active Substance: CYCLOPHOSPHAMIDE
     Indication: BREAST CANCER
     Dosage: DAY 1, EVERY 14 DAYS FOR 4 CYCLES
     Route: 042
  3. BEVACIZUMAB. [Suspect]
     Active Substance: BEVACIZUMAB
     Indication: BREAST CANCER
     Dosage: EVERY 21 DAYS FOR 4 CYCLES
     Route: 042
  4. DOXORUBICIN [Suspect]
     Active Substance: DOXORUBICIN
     Indication: BREAST CANCER
     Dosage: DAY 1, EVERY 14 DAYS FOR 4 CYCLES
     Route: 042
  5. PEG-FILGRASTIM [Suspect]
     Active Substance: PEGFILGRASTIM
     Indication: BREAST CANCER
     Dosage: DAY 1, EVERY 14 DAYS FOR 4 CYCLES
     Route: 058
  6. DOCETAXEL. [Suspect]
     Active Substance: DOCETAXEL
     Indication: BREAST CANCER
     Dosage: DAYS 1 AND 8
     Route: 042

REACTIONS (1)
  - Death [Fatal]
